FAERS Safety Report 9212431 (Version 1)
Quarter: 2013Q2

REPORT INFORMATION
  Report Type: Spontaneous
  Country: US (occurrence: US)
  Receive Date: 20130401
  Receipt Date: 20130401
  Transmission Date: 20140414
  Serious: Yes (Other)
  Sender: FDA-Public Use
  Company Number: CHPA2013US005545

PATIENT
  Sex: Female

DRUGS (2)
  1. EXCEDRIN TENSION HEADACHE [Suspect]
     Indication: HEADACHE
     Dosage: 1 OR 2 DF, PRN
     Route: 048
  2. EXCEDRIN TENSION HEADACHE [Suspect]
     Indication: MYALGIA

REACTIONS (4)
  - Cystic fibrosis [Not Recovered/Not Resolved]
  - Infection [Unknown]
  - Feeling jittery [Unknown]
  - Underdose [Unknown]
